FAERS Safety Report 17810174 (Version 8)
Quarter: 2022Q1

REPORT INFORMATION
  Report Type: Report from Study
  Country: JP (occurrence: JP)
  Receive Date: 20200521
  Receipt Date: 20220124
  Transmission Date: 20220423
  Serious: Yes (Hospitalization)
  Sender: FDA-Public Use
  Company Number: JP-CHUGAI-C2020013639ROCHE

PATIENT
  Age: 68 Year
  Sex: Male
  Weight: 86.5 kg

DRUGS (15)
  1. ATEZOLIZUMAB [Suspect]
     Active Substance: ATEZOLIZUMAB
     Indication: Lung adenocarcinoma
     Route: 041
     Dates: start: 20191031, end: 20210819
  2. ALIMTA [Concomitant]
     Active Substance: PEMETREXED DISODIUM
     Indication: Lung adenocarcinoma
     Route: 041
     Dates: start: 20191031
  3. CARBOPLATIN [Concomitant]
     Active Substance: CARBOPLATIN
     Indication: Hypertension
     Route: 041
     Dates: start: 20191031
  4. CILNIDIPINE [Concomitant]
     Active Substance: CILNIDIPINE
     Indication: Hypertension
     Dosage: BEGINNING OF DOSAGE DAY: TRIAL PREINITIATION
     Route: 048
  5. CANAGLIFLOZIN\TENELIGLIPTIN [Concomitant]
     Active Substance: CANAGLIFLOZIN\TENELIGLIPTIN
     Indication: Diabetes mellitus
     Dosage: BEGINNING OF DOSAGE DAY: TRIAL PREINITIATION
     Route: 048
  6. METGLUCO [Concomitant]
     Active Substance: METFORMIN HYDROCHLORIDE
     Indication: Diabetes mellitus
     Dosage: BEGINNING OF DOSAGE DAY: TRIAL PREINITIATION
     Route: 048
  7. RABEPRAZOLE SODIUM [Concomitant]
     Active Substance: RABEPRAZOLE SODIUM
     Indication: Gastritis prophylaxis
     Dosage: BEGINNING OF DOSAGE DAY: TRIAL PREINITIATION
     Route: 048
  8. AMBROXOL HYDROCHLORIDE [Concomitant]
     Active Substance: AMBROXOL HYDROCHLORIDE
     Indication: Lung adenocarcinoma
     Dosage: BEGINNING OF DOSAGE DAY: TRIAL PREINITIATION
     Route: 048
  9. LIPITOR [Concomitant]
     Active Substance: ATORVASTATIN CALCIUM
     Indication: Hyperlipidaemia
     Dosage: BEGINNING OF DOSAGE DAY: TRIAL PREINITIATION
     Route: 048
  10. DIOVAN [Concomitant]
     Active Substance: VALSARTAN
     Indication: Hypertension
     Dosage: BEGINNING OF DOSAGE DAY: TRIAL PREINITIATION
     Route: 048
  11. KETOPROFEN [Concomitant]
     Active Substance: KETOPROFEN
     Indication: Arthralgia
     Dosage: USE INTERVAL: FOR TON
     Route: 061
     Dates: start: 20200122
  12. HYALURONATE SODIUM [Concomitant]
     Active Substance: HYALURONATE SODIUM
     Indication: Abnormal sensation in eye
     Dosage: DOSAGE: PROPER QUANTITY AND DOSE INTERVAL: FOR TON
     Route: 047
     Dates: start: 20191122
  13. CARBOCYSTEINE [Concomitant]
     Active Substance: CARBOCYSTEINE
     Indication: Lung adenocarcinoma
     Dosage: 500 MILLIGRAM, TID
     Route: 048
     Dates: start: 20200401
  14. ZOLPIDEM TARTRATE [Concomitant]
     Active Substance: ZOLPIDEM TARTRATE
     Indication: Insomnia
     Dosage: DOSE INTERVAL: FOR TON
     Route: 048
     Dates: start: 20200422
  15. DEQUALINIUM CHLORIDE [Concomitant]
     Active Substance: DEQUALINIUM CHLORIDE
     Indication: Oropharyngeal pain
     Route: 048
     Dates: start: 20191112

REACTIONS (2)
  - Adrenocorticotropic hormone deficiency [Recovering/Resolving]
  - Multiple injuries [Recovered/Resolved]

NARRATIVE: CASE EVENT DATE: 20200506
